FAERS Safety Report 4457517-3 (Version None)
Quarter: 2004Q3

REPORT INFORMATION
  Report Type: 
  Country: None (occurrence: None)
  Receive Date: 20040922
  Receipt Date: 20040908
  Transmission Date: 20050211
  Serious: Yes (Hospitalization)
  Sender: FDA-Public Use
  Company Number: USA040977764

PATIENT
  Sex: Female

DRUGS (13)
  1. ZYPREXA [Suspect]
     Indication: PSYCHOTIC DISORDER
     Dosage: 20 MG IN THE EVENING
     Dates: start: 20020101
  2. EFFEXOR [Concomitant]
  3. COLACE (DOCUSATE SODIUM) [Concomitant]
  4. CLONAZEPAM [Concomitant]
  5. TRAMADOL HCL [Concomitant]
  6. AMBIEN [Concomitant]
  7. CARBAMAZEPINE [Concomitant]
  8. VICODIN ES [Concomitant]
  9. ACIDBUTAL CAPS (APAP/BUTAL/CAFF 325-50-40) [Concomitant]
  10. NAPROXEN SODIUM [Concomitant]
  11. BACLOFEN [Concomitant]
  12. ALBUTEROL [Concomitant]
  13. PREVACID [Concomitant]

REACTIONS (6)
  - ABDOMINAL PAIN UPPER [None]
  - BLOOD SODIUM DECREASED [None]
  - CHEST DISCOMFORT [None]
  - DIABETES MELLITUS [None]
  - GASTROINTESTINAL DISORDER [None]
  - HEPATIC ENZYME INCREASED [None]
